FAERS Safety Report 16535375 (Version 2)
Quarter: 2019Q3

REPORT INFORMATION
  Report Type: Report from Study
  Country: US (occurrence: US)
  Receive Date: 20190705
  Receipt Date: 20190826
  Transmission Date: 20191004
  Serious: Yes (Other)
  Sender: FDA-Public Use
  Company Number: US-BIOGEN-2019BI00711408

PATIENT
  Age: 56 Year
  Sex: Female

DRUGS (5)
  1. FLOXIN [Concomitant]
     Active Substance: OFLOXACIN
     Indication: PRODUCT USED FOR UNKNOWN INDICATION
     Route: 065
  2. TECFIDERA [Suspect]
     Active Substance: DIMETHYL FUMARATE
     Indication: MULTIPLE SCLEROSIS
     Dosage: MAINTENANCE DOSE
     Route: 048
     Dates: start: 2015
  3. BUDESONIDE. [Concomitant]
     Active Substance: BUDESONIDE
     Indication: PRODUCT USED FOR UNKNOWN INDICATION
     Route: 065
  4. CEFDINIR. [Concomitant]
     Active Substance: CEFDINIR
     Indication: PRODUCT USED FOR UNKNOWN INDICATION
     Route: 065
  5. MUPIROCIN. [Suspect]
     Active Substance: MUPIROCIN
     Indication: PRODUCT USED FOR UNKNOWN INDICATION
     Route: 045

REACTIONS (16)
  - Facial pain [Unknown]
  - Nasal turbinate hypertrophy [Unknown]
  - Hemianaesthesia [Unknown]
  - Sinusitis fungal [Recovered/Resolved]
  - Post procedural haemorrhage [Unknown]
  - Disorder of orbit [Unknown]
  - Mixed deafness [Recovered/Resolved]
  - Pneumonia [Unknown]
  - Diplopia [Recovered/Resolved]
  - Depression [Unknown]
  - Post procedural inflammation [Unknown]
  - Otitis media [Unknown]
  - Nasal septum deviation [Unknown]
  - Eye pain [Not Recovered/Not Resolved]
  - Multiple sclerosis [Unknown]
  - Hypoacusis [Unknown]

NARRATIVE: CASE EVENT DATE: 20190205
